FAERS Safety Report 8002022-0 (Version None)
Quarter: 2011Q4

REPORT INFORMATION
  Report Type: 
  Country: None (occurrence: None)
  Receive Date: 20111220
  Receipt Date: 20111205
  Transmission Date: 20120403
  Serious: Yes (Other)
  Sender: FDA-Public Use
  Company Number: 2011P1012008

PATIENT
  Age: 60 Year
  Sex: Male
  Weight: 95.2554 kg

DRUGS (2)
  1. SHOTS (UNSPECIFIED) [Concomitant]
  2. FLUOROURACIL [Suspect]
     Dosage: BID; TOP
     Route: 061
     Dates: start: 20111101

REACTIONS (9)
  - ERYTHEMA [None]
  - BURNS SECOND DEGREE [None]
  - BURNS FIRST DEGREE [None]
  - ACCIDENTAL EXPOSURE [None]
  - DRUG EFFECT DECREASED [None]
  - FINGER DEFORMITY [None]
  - PRODUCT CONTAINER SEAL ISSUE [None]
  - CHEMICAL INJURY [None]
  - SKIN INFECTION [None]
